FAERS Safety Report 5051654-0 (Version None)
Quarter: 2006Q3

REPORT INFORMATION
  Report Type: 
  Country: None (occurrence: None)
  Receive Date: 20060711
  Receipt Date: 20060620
  Transmission Date: 20061208
  Serious: Yes (Hospitalization)
  Sender: FDA-Public Use
  Company Number: US200604002659

PATIENT
  Sex: Female

DRUGS (6)
  1. CYMBALTA [Suspect]
     Indication: DEPRESSION
     Dosage: SEE IMAGE
     Dates: start: 20060201, end: 20060401
  2. CYMBALTA [Suspect]
     Indication: DEPRESSION
     Dosage: SEE IMAGE
     Dates: start: 20060401
  3. PROZAC [Suspect]
     Dates: start: 20000101, end: 20000101
  4. TRAZODONE HCL [Concomitant]
  5. ADVIL [Concomitant]
  6. ALLEGRA-D/01367401/ (FEXOFENADINE HYDROCHLORIDE, PSEUDOEPHEDRINE HYDRO [Concomitant]

REACTIONS (10)
  - ANGER [None]
  - DEPRESSION [None]
  - DISTURBANCE IN ATTENTION [None]
  - HEPATIC PAIN [None]
  - HEPATIC STEATOSIS [None]
  - SEROTONIN SYNDROME [None]
  - SPEECH DISORDER [None]
  - THINKING ABNORMAL [None]
  - TREMOR [None]
  - WALKING AID USER [None]
